FAERS Safety Report 8926863 (Version 1)
Quarter: 2012Q4

REPORT INFORMATION
  Report Type: 
  Country: US (occurrence: US)
  Receive Date: 20121127
  Receipt Date: 20121127
  Transmission Date: 20130627
  Serious: Yes (Death, Hospitalization, Other)
  Sender: FDA-Public Use
  Company Number: US-BAYER-2012-121810

PATIENT
  Sex: Female

DRUGS (16)
  1. STIVARGA [Suspect]
     Indication: COLON CANCER
     Dosage: UNK
     Dates: start: 2012, end: 20121019
  2. STIVARGA [Suspect]
     Indication: COLON CANCER
     Dosage: UNK
     Dates: start: 2012, end: 20121019
  3. VITAMIN D [Concomitant]
  4. LACTULOSE [Concomitant]
     Dosage: UNK UNK, PRN
  5. MIRALAX [Concomitant]
     Dosage: UNK UNK, PRN
  6. IMODIUM [Concomitant]
  7. COMPAZINE [Concomitant]
  8. OMEPRAZOLE [Concomitant]
  9. ASPIRIN [Concomitant]
  10. MULTIVITAMIN [Concomitant]
  11. ZOFRAN [Concomitant]
  12. TEMAZEPAM [Concomitant]
  13. OXYCODONE [Concomitant]
  14. ANALGESICS [Concomitant]
     Dosage: UNK UNK, PRN
  15. IBUPROFEN [Concomitant]
  16. LORAZEPAM [Concomitant]
     Dosage: UNK UNK, PRN

REACTIONS (12)
  - Muscular weakness [Fatal]
  - Fatigue [Fatal]
  - Aphagia [None]
  - Nausea [Recovered/Resolved]
  - Vomiting [Recovered/Resolved]
  - Diarrhoea [Recovered/Resolved]
  - Rash [None]
  - Skin burning sensation [None]
  - Erythema [None]
  - Mucosal inflammation [None]
  - Oropharyngeal pain [None]
  - Pyrexia [None]
